FAERS Safety Report 18141920 (Version 2)
Quarter: 2023Q2

REPORT INFORMATION
  Report Type: Spontaneous
  Country: ES (occurrence: ES)
  Receive Date: 20200813
  Receipt Date: 20230609
  Transmission Date: 20230721
  Serious: Yes (Death, Life-Threatening, Other)
  Sender: FDA-Public Use
  Company Number: ES-AMGEN-ESPSP2020126946

PATIENT

DRUGS (3)
  1. ROMIPLOSTIM [Suspect]
     Active Substance: ROMIPLOSTIM
     Indication: Thrombocytopenia
     Dosage: UNK
     Route: 065
  2. FILGRASTIM [Suspect]
     Active Substance: FILGRASTIM
     Indication: Thrombocytopenia
     Dosage: UNK
     Route: 065
  3. FILGRASTIM [Suspect]
     Active Substance: FILGRASTIM
     Indication: Neutropenia

REACTIONS (7)
  - Acute graft versus host disease [Fatal]
  - Disease progression [Fatal]
  - Infection [Fatal]
  - Graft versus host disease [Unknown]
  - Cytopenia [Unknown]
  - Off label use [Unknown]
  - Treatment failure [Unknown]
